FAERS Safety Report 20292486 (Version 1)
Quarter: 2022Q1

REPORT INFORMATION
  Report Type: Spontaneous
  Country: US (occurrence: US)
  Receive Date: 20220104
  Receipt Date: 20220104
  Transmission Date: 20220423
  Serious: No
  Sender: FDA-Public Use
  Company Number: US-GALDERMA-US2021016343

PATIENT

DRUGS (5)
  1. PROACTIV MD ADAPALENE ACNE TREATMENT [Suspect]
     Active Substance: ADAPALENE
     Indication: Product used for unknown indication
     Dosage: 1 DOSAGE FORM, 2 OR MORE TIMES A WEEK
     Route: 061
     Dates: start: 20210824, end: 20210901
  2. PROACTIV MD DAILY OIL CONTROL SPF 30 [Suspect]
     Active Substance: AVOBENZONE\OCTISALATE\OCTOCRYLENE
     Indication: Product used for unknown indication
     Dosage: 1 DOSAGE FORM, CUTANEOUS SOLUTION, 2 OR MORE TIMES A WEEK
     Route: 061
     Dates: start: 20210824, end: 20210901
  3. Proactiv MD Ultra Gentle Cleanser [Concomitant]
     Indication: Product used for unknown indication
     Dosage: 1 DOSAGE FORM, ONCE A DAY AT NIGHT
     Route: 061
     Dates: start: 20210824, end: 2021
  4. Proactiv MD Ultra Gentle Cleanser [Concomitant]
     Dosage: 1 DOSAGE FORM, TWO TIMES A WEEK
     Route: 061
     Dates: start: 2021, end: 20210901
  5. COSMETICS [Concomitant]
     Active Substance: COSMETICS
     Indication: Product used for unknown indication
     Dosage: 1 DOSAGE FORM, 2 OR MORE TIMES A WEEK
     Route: 061
     Dates: start: 20210824, end: 20210901

REACTIONS (4)
  - Rash papular [Recovered/Resolved]
  - Skin irritation [Recovered/Resolved]
  - Underdose [Recovered/Resolved]
  - Inappropriate schedule of product administration [Recovered/Resolved]

NARRATIVE: CASE EVENT DATE: 20210824
